FAERS Safety Report 4823785-9 (Version None)
Quarter: 2005Q4

REPORT INFORMATION
  Report Type: 
  Country: None (occurrence: None)
  Receive Date: 20051109
  Receipt Date: 20050803
  Transmission Date: 20060501
  Serious: Yes (Hospitalization)
  Sender: FDA-Public Use
  Company Number: US-MERCK-0508USA01252

PATIENT
  Age: 55 Year
  Sex: Male
  Weight: 120 kg

DRUGS (12)
  1. VIOXX [Suspect]
     Indication: ANKYLOSING SPONDYLITIS
     Route: 048
     Dates: start: 19991001, end: 20010901
  2. VIOXX [Suspect]
     Indication: PAIN
     Route: 048
     Dates: start: 19991001, end: 20010901
  3. ASPIRIN [Concomitant]
     Route: 065
  4. CARISOPRODOL [Concomitant]
     Indication: PAIN
     Route: 065
  5. PROZAC [Concomitant]
     Indication: PAIN
     Route: 065
  6. PROZAC [Concomitant]
     Indication: NERVOUSNESS
     Route: 065
  7. OXYCODONE [Concomitant]
     Indication: PAIN
     Route: 065
  8. GLUCOPHAGE [Concomitant]
     Indication: DIABETES MELLITUS
     Route: 065
  9. PRANDIN [Concomitant]
     Indication: DIABETES MELLITUS
     Route: 065
  10. CERUMENEX [Concomitant]
     Route: 065
  11. PREVACID [Concomitant]
     Route: 065
  12. HYDROCODONE BITARTRATE [Concomitant]
     Route: 065

REACTIONS (6)
  - DIABETES MELLITUS [None]
  - GASTROOESOPHAGEAL REFLUX DISEASE [None]
  - HYPERTENSION [None]
  - MENIERE'S DISEASE [None]
  - MYOCARDIAL INFARCTION [None]
  - NEURALGIA [None]
